FAERS Safety Report 25078009 (Version 1)
Quarter: 2025Q1

REPORT INFORMATION
  Report Type: Other
  Country: JP (occurrence: JP)
  Receive Date: 20250314
  Receipt Date: 20250314
  Transmission Date: 20250408
  Serious: Yes (Death)
  Sender: ANI
  Company Number: JP-ANIPHARMA-015942

PATIENT
  Age: 73 Year
  Sex: Female

DRUGS (4)
  1. CYCLOPHOSPHAMIDE [Suspect]
     Active Substance: CYCLOPHOSPHAMIDE
     Indication: Interstitial lung disease
  2. TOFACITINIB [Concomitant]
     Active Substance: TOFACITINIB
     Indication: Interstitial lung disease
  3. CYCLOPHOSPHAMIDE [Suspect]
     Active Substance: CYCLOPHOSPHAMIDE
     Indication: Dermatomyositis
  4. TOFACITINIB [Concomitant]
     Active Substance: TOFACITINIB
     Indication: Dermatomyositis

REACTIONS (1)
  - Therapy non-responder [Fatal]
